FAERS Safety Report 5152349-5 (Version None)
Quarter: 2006Q4

REPORT INFORMATION
  Report Type: 
  Country: None (occurrence: None)
  Receive Date: 20061116
  Receipt Date: 20061110
  Transmission Date: 20070319
  Serious: Yes (Death)
  Sender: FDA-Public Use
  Company Number: 2006AC02073

PATIENT
  Age: 11 Year
  Sex: Male

DRUGS (1)
  1. BUPIVACAINE [Suspect]
     Indication: PAIN
     Dosage: ROUTE REPORTED AS 'OTHER/PARENTERAL'.

REACTIONS (5)
  - BRADYCARDIA [None]
  - HEART RATE DECREASED [None]
  - HYPOTENSION [None]
  - MEDICATION ERROR [None]
  - OXYGEN SATURATION DECREASED [None]
